FAERS Safety Report 18058954 (Version 3)
Quarter: 2020Q4

REPORT INFORMATION
  Report Type: Report from Study
  Country: US (occurrence: US)
  Receive Date: 20200723
  Receipt Date: 20201013
  Transmission Date: 20210113
  Serious: Yes (Death, Other)
  Sender: FDA-Public Use
  Company Number: US-SA-2020SA189742

PATIENT

DRUGS (1)
  1. ALIROCUMAB [Suspect]
     Active Substance: ALIROCUMAB
     Indication: HYPERCHOLESTEROLAEMIA
     Dosage: 75 MG, QOW
     Route: 058
     Dates: start: 20200212, end: 20200708

REACTIONS (4)
  - Inappropriate schedule of product administration [Unknown]
  - Insomnia [Unknown]
  - Cough [Unknown]
  - Death [Fatal]

NARRATIVE: CASE EVENT DATE: 2020
